FAERS Safety Report 12796798 (Version 2)
Quarter: 2016Q4

REPORT INFORMATION
  Report Type: Spontaneous
  Country: FR (occurrence: FR)
  Receive Date: 20160929
  Receipt Date: 20161006
  Transmission Date: 20170207
  Serious: Yes (Other)
  Sender: FDA-Public Use
  Company Number: FR-PFIZER INC-2016311551

PATIENT
  Age: 74 Year
  Sex: Male

DRUGS (6)
  1. CALCIPARINE [Suspect]
     Active Substance: HEPARIN CALCIUM
     Dosage: 0.4 ML, QD
     Route: 058
     Dates: start: 20160421, end: 20160520
  2. SPASFON /00765801/ [Suspect]
     Active Substance: PHLOROGLUCINOL\1,3,5-TRIMETHOXYBENZENE
     Dosage: UNK, TID
     Route: 048
     Dates: start: 20160516, end: 20160520
  3. MOCLAMINE [Concomitant]
     Active Substance: MOCLOBEMIDE
     Dosage: UNK
     Dates: start: 20160510
  4. LANSOPRAZOLE. [Suspect]
     Active Substance: LANSOPRAZOLE
     Dosage: 30 MG, QD
     Route: 048
     Dates: start: 20160420, end: 20160520
  5. ALPRAZOLAM. [Suspect]
     Active Substance: ALPRAZOLAM
     Dosage: UNK UNK, BID
     Route: 048
     Dates: start: 20160506, end: 20160527
  6. FOLIC ACID. [Suspect]
     Active Substance: FOLIC ACID
     Dosage: 5 MG, QD
     Route: 048
     Dates: start: 20160503, end: 20160528

REACTIONS (1)
  - Pancytopenia [Recovering/Resolving]

NARRATIVE: CASE EVENT DATE: 20160520
